FAERS Safety Report 10029619 (Version 1)
Quarter: 2014Q1

REPORT INFORMATION
  Report Type: Spontaneous
  Country: US (occurrence: None)
  Receive Date: 20140320
  Receipt Date: 20140320
  Transmission Date: 20141002
  Serious: Yes (Other)
  Sender: FDA-Public Use
  Company Number: None

PATIENT
  Age: 53 Year
  Sex: Female
  Weight: 110.5 kg

DRUGS (2)
  1. BLEOMYCIN [Suspect]
  2. CISPLATIN [Suspect]

REACTIONS (1)
  - Neutrophil count decreased [None]
